FAERS Safety Report 17894577 (Version 18)
Quarter: 2024Q4

REPORT INFORMATION
  Report Type: Report from Study
  Country: US (occurrence: US)
  Receive Date: 20200615
  Receipt Date: 20241230
  Transmission Date: 20250114
  Serious: Yes (Hospitalization)
  Sender: TAKEDA
  Company Number: US-SHIRE-US202015328

PATIENT
  Age: 29 Year
  Sex: Female
  Weight: 63 kg

DRUGS (33)
  1. HUMAN IMMUNOGLOBULIN G [Interacting]
     Active Substance: HUMAN IMMUNOGLOBULIN G
     Indication: Primary immunodeficiency syndrome
     Dosage: 18 GRAM, Q2WEEKS
     Dates: start: 20181017
  2. HUMAN IMMUNOGLOBULIN G [Interacting]
     Active Substance: HUMAN IMMUNOGLOBULIN G
     Indication: Immune system disorder
     Dosage: 18 GRAM, Q2WEEKS
  3. HUMAN IMMUNOGLOBULIN G [Interacting]
     Active Substance: HUMAN IMMUNOGLOBULIN G
     Indication: Hypergammaglobulinaemia
     Dosage: 20 GRAM, Q2WEEKS
  4. HUMAN IMMUNOGLOBULIN G [Interacting]
     Active Substance: HUMAN IMMUNOGLOBULIN G
     Dosage: 18 GRAM, Q2WEEKS
  5. HUMAN IMMUNOGLOBULIN G [Interacting]
     Active Substance: HUMAN IMMUNOGLOBULIN G
     Dosage: UNK
  6. BENADRYL [Interacting]
     Active Substance: DIPHENHYDRAMINE HYDROCHLORIDE
     Indication: Product used for unknown indication
     Dosage: UNK
  7. ZOFRAN [Suspect]
     Active Substance: ONDANSETRON HYDROCHLORIDE
     Indication: Product used for unknown indication
     Dosage: UNK
  8. TRELEGY ELLIPTA [Interacting]
     Active Substance: FLUTICASONE FUROATE\UMECLIDINIUM BROMIDE\VILANTEROL TRIFENATATE
     Indication: Product used for unknown indication
     Dosage: UNK
  9. PEPCID [Suspect]
     Active Substance: FAMOTIDINE
     Indication: Product used for unknown indication
     Dosage: UNK
  10. NORTRIPTYLINE [Interacting]
     Active Substance: NORTRIPTYLINE
     Indication: Product used for unknown indication
     Dosage: UNK
  11. FLUTICASONE FUROATE [Interacting]
     Active Substance: FLUTICASONE FUROATE
     Indication: Product used for unknown indication
     Dosage: UNK
  12. UMECLIDINIUM BROMIDE [Interacting]
     Active Substance: UMECLIDINIUM BROMIDE
     Indication: Product used for unknown indication
     Dosage: UNK
  13. DUPIXENT [Interacting]
     Active Substance: DUPILUMAB
     Indication: Asthma
     Dosage: 300 MILLIGRAM, QOD
  14. ACETAMINOPHEN [Concomitant]
     Active Substance: ACETAMINOPHEN
     Indication: Product used for unknown indication
     Dosage: UNK
  15. ZYRTEC [Concomitant]
     Active Substance: CETIRIZINE HYDROCHLORIDE
     Indication: Product used for unknown indication
     Dosage: UNK
  16. FIORICET [Concomitant]
     Active Substance: ACETAMINOPHEN\BUTALBITAL\CAFFEINE
     Indication: Product used for unknown indication
     Dosage: UNK
  17. TOBRAMYCIN [Concomitant]
     Active Substance: TOBRAMYCIN\TOBRAMYCIN SULFATE
     Indication: Product used for unknown indication
     Dosage: UNK
  18. MUPIROCIN [Concomitant]
     Active Substance: MUPIROCIN
     Indication: Product used for unknown indication
     Dosage: UNK
  19. ALBUTEROL SULFATE [Concomitant]
     Active Substance: ALBUTEROL SULFATE
     Indication: Product used for unknown indication
     Dosage: UNK
  20. VITAMINS [Concomitant]
     Active Substance: VITAMINS
     Dosage: UNK
  21. PROAIR HFA [Concomitant]
     Active Substance: ALBUTEROL SULFATE
     Indication: Product used for unknown indication
     Dosage: UNK
  22. NUVARING [Concomitant]
     Active Substance: ETHINYL ESTRADIOL\ETONOGESTREL
     Indication: Product used for unknown indication
     Dosage: UNK
  23. DIPHENHYDRAMINE HYDROCHLORIDE [Concomitant]
     Active Substance: DIPHENHYDRAMINE HYDROCHLORIDE
     Dosage: UNK
  24. Lmx [Concomitant]
     Dosage: UNK
  25. NASONEX [Concomitant]
     Active Substance: MOMETASONE FUROATE
     Indication: Product used for unknown indication
     Dosage: UNK
  26. LORATADINE [Concomitant]
     Active Substance: LORATADINE
     Indication: Product used for unknown indication
     Dosage: UNK
  27. SYMBICORT [Concomitant]
     Active Substance: BUDESONIDE\FORMOTEROL FUMARATE DIHYDRATE
     Indication: Product used for unknown indication
     Dosage: UNK
  28. BUDESONIDE [Concomitant]
     Active Substance: BUDESONIDE
     Indication: Product used for unknown indication
     Dosage: UNK
  29. DIPHENHYDRAMINE [Concomitant]
     Active Substance: DIPHENHYDRAMINE
     Indication: Product used for unknown indication
     Dosage: UNK
  30. EPINEPHRINE [Concomitant]
     Active Substance: EPINEPHRINE
     Indication: Product used for unknown indication
     Dosage: UNK
  31. PERANTAL [Concomitant]
     Dosage: UNK
  32. BUTALBITAL [Concomitant]
     Active Substance: BUTALBITAL
     Dosage: UNK
  33. CAFFEINE [Concomitant]
     Active Substance: CAFFEINE
     Dosage: UNK

REACTIONS (26)
  - Sinusitis [Unknown]
  - Post procedural complication [Unknown]
  - Tachycardia [Unknown]
  - Headache [Unknown]
  - Gastrooesophageal reflux disease [Unknown]
  - Sensitive skin [Unknown]
  - Infusion site irritation [Unknown]
  - Upper respiratory tract infection [Not Recovered/Not Resolved]
  - Vitamin D decreased [Unknown]
  - Illness [Unknown]
  - Feeling jittery [Unknown]
  - Asthma [Not Recovered/Not Resolved]
  - Drug interaction [Unknown]
  - Drug hypersensitivity [Unknown]
  - Product dose omission issue [Unknown]
  - Sinusitis bacterial [Unknown]
  - Needle issue [Unknown]
  - Device infusion issue [Unknown]
  - Muscle twitching [Unknown]
  - Somnolence [Unknown]
  - Asthenia [Unknown]
  - Tremor [Unknown]
  - Infusion site discomfort [Unknown]
  - Infusion site pruritus [Unknown]
  - Urticaria [Recovered/Resolved]
  - Migraine [Unknown]

NARRATIVE: CASE EVENT DATE: 20201007
